FAERS Safety Report 5300936-3 (Version None)
Quarter: 2007Q2

REPORT INFORMATION
  Report Type: 
  Country: None (occurrence: None)
  Receive Date: 20070411
  Receipt Date: 20070402
  Transmission Date: 20071010
  Serious: Yes (Other)
  Sender: FDA-Public Use
  Company Number: 2007SP006186

PATIENT
  Age: 36 Year
  Sex: Male

DRUGS (2)
  1. PEG-INTRON [Suspect]
     Indication: HEPATITIS C
     Dosage: SC
     Route: 058
     Dates: start: 20061026, end: 20070316
  2. RIBAVIRIN [Suspect]
     Indication: HEPATITIS C
     Dosage: PO
     Route: 048
     Dates: start: 20061026, end: 20070316

REACTIONS (15)
  - CARDIAC VALVE DISEASE [None]
  - CONTUSION [None]
  - DYSPNOEA [None]
  - EMPHYSEMA [None]
  - HAEMOGLOBIN DECREASED [None]
  - IMMUNE SYSTEM DISORDER [None]
  - INJECTION SITE REACTION [None]
  - OXYGEN SATURATION DECREASED [None]
  - PLATELET COUNT DECREASED [None]
  - PULMONARY FUNCTION TEST DECREASED [None]
  - RED BLOOD CELL COUNT DECREASED [None]
  - SKIN CHAPPED [None]
  - SKIN WRINKLING [None]
  - STOMATITIS [None]
  - WHITE BLOOD CELL COUNT DECREASED [None]
